FAERS Safety Report 7818871-5 (Version None)
Quarter: 2011Q4

REPORT INFORMATION
  Report Type: 
  Country: None (occurrence: None)
  Receive Date: 20111017
  Receipt Date: 20111017
  Transmission Date: 20120403
  Serious: Yes (Hospitalization)
  Sender: FDA-Public Use
  Company Number: None

PATIENT
  Age: 74 Year
  Sex: Male
  Weight: 82.3 kg

DRUGS (1)
  1. DEXAMETHASONE [Suspect]
     Indication: INFLAMMATION
     Dosage: 2 MG BID PO
     Route: 048
     Dates: start: 20110929, end: 20111002

REACTIONS (1)
  - PSYCHOTIC DISORDER [None]
